FAERS Safety Report 8521633-7 (Version None)
Quarter: 2012Q3

REPORT INFORMATION
  Report Type: 
  Country: None (occurrence: None)
  Receive Date: 20120719
  Receipt Date: 20120716
  Transmission Date: 20120928
  Serious: Yes (Hospitalization, Other)
  Sender: FDA-Public Use
  Company Number: PHHY2012PH060683

PATIENT
  Age: 26 Year
  Sex: Female

DRUGS (1)
  1. TEGRETOL [Suspect]
     Indication: CONVULSION
     Dosage: 200 MG, UNK
     Route: 048

REACTIONS (5)
  - CONVULSION [None]
  - MATERNAL EXPOSURE DURING PREGNANCY [None]
  - RASH [None]
  - PYREXIA [None]
  - ABORTION SPONTANEOUS [None]
